FAERS Safety Report 9579975 (Version 1)
Quarter: 2013Q3

REPORT INFORMATION
  Report Type: Spontaneous
  Country: CA (occurrence: None)
  Receive Date: 20130916
  Receipt Date: 20130916
  Transmission Date: 20140515
  Serious: Yes (Other)
  Sender: FDA-Public Use
  Company Number: JPI-P-025504

PATIENT
  Age: 44 Year
  Sex: Male

DRUGS (3)
  1. XYREM (500 MILLIGRAM/MILLILITERS, SOLUTION) (SODIUM OXYBATE) [Suspect]
     Indication: CATAPLEXY
     Route: 048
     Dates: start: 20120821
  2. DEXTROAMPHETAMINE [Concomitant]
  3. PANTOPRAZOLE [Concomitant]

REACTIONS (5)
  - Depressed mood [None]
  - Condition aggravated [None]
  - Negative thoughts [None]
  - Fear [None]
  - Drug ineffective [None]
